FAERS Safety Report 20451749 (Version 1)
Quarter: 2022Q1

REPORT INFORMATION
  Report Type: Report from Study
  Country: JP (occurrence: JP)
  Receive Date: 20220209
  Receipt Date: 20220209
  Transmission Date: 20220423
  Serious: Yes (Other)
  Sender: FDA-Public Use
  Company Number: JP-BAUSCH-BL-2022-003745

PATIENT
  Age: 49 Year
  Sex: Female

DRUGS (1)
  1. RIFAXIMIN [Suspect]
     Active Substance: RIFAXIMIN
     Indication: Intestinal obstruction
     Dosage: FOR 4 WEEKS
     Route: 048

REACTIONS (2)
  - Vagus nerve disorder [Recovered/Resolved]
  - Intentional product use issue [Unknown]
